FAERS Safety Report 8844809 (Version 1)
Quarter: 2012Q4

REPORT INFORMATION
  Report Type: Spontaneous
  Country: US (occurrence: None)
  Receive Date: 20120928
  Receipt Date: 20120928
  Transmission Date: 20130627
  Serious: Yes (Hospitalization, Other)
  Sender: FDA-Public Use
  Company Number: RB-39474-2012

PATIENT
  Age: 54 Year
  Sex: Male

DRUGS (1)
  1. SUBOXONE [Suspect]
     Indication: PRODUCT USED FOR UNKNOWN INDICATION
     Dosage: Dosing details not provided Unknown

REACTIONS (5)
  - Road traffic accident [None]
  - Limb crushing injury [None]
  - Arthralgia [None]
  - Pain in extremity [None]
  - Nerve injury [None]
